FAERS Safety Report 24803415 (Version 3)
Quarter: 2025Q1

REPORT INFORMATION
  Report Type: Spontaneous
  Country: US (occurrence: US)
  Receive Date: 20250103
  Receipt Date: 20250115
  Transmission Date: 20250409
  Serious: No
  Sender: IPSEN BIOPHARMACEUTICALS, INC.
  Company Number: US-IPSEN Group, Research and Development-2024-26490

PATIENT
  Age: 73 Year
  Sex: Female
  Weight: 122.51 kg

DRUGS (12)
  1. IQIRVO [Suspect]
     Active Substance: ELAFIBRANOR
     Indication: Primary biliary cholangitis
     Dosage: DAILY BEFORE BREAKFAST
     Route: 048
     Dates: start: 20240815
  2. PROTONIX [Concomitant]
     Active Substance: PANTOPRAZOLE SODIUM
  3. OCALIVA [Concomitant]
     Active Substance: OBETICHOLIC ACID
  4. MELATONIN [Concomitant]
     Active Substance: MELATONIN
  5. TYLENOL [Concomitant]
     Active Substance: ACETAMINOPHEN
  6. VITAMIN D3 [Concomitant]
     Active Substance: CHOLECALCIFEROL
  7. LEVOTHYROXINE SODIUM [Concomitant]
     Active Substance: LEVOTHYROXINE SODIUM
  8. SIMVASTATIN [Concomitant]
     Active Substance: SIMVASTATIN
  9. AMLODIPINE BESYLATE [Concomitant]
     Active Substance: AMLODIPINE BESYLATE
  10. ATENOLOL [Concomitant]
     Active Substance: ATENOLOL
  11. ANASTROZOLE [Concomitant]
     Active Substance: ANASTROZOLE
  12. VALSARTAN - HYDROCHLOROTHIAZIDE [Concomitant]

REACTIONS (2)
  - Upper respiratory tract infection [Not Recovered/Not Resolved]
  - Nasopharyngitis [Unknown]

NARRATIVE: CASE EVENT DATE: 20250103
